FAERS Safety Report 9644256 (Version 3)
Quarter: 2014Q1

REPORT INFORMATION
  Report Type: Report from Study
  Country: ES (occurrence: ES)
  Receive Date: 20131024
  Receipt Date: 20140304
  Transmission Date: 20141002
  Serious: Yes (Hospitalization)
  Sender: FDA-Public Use
  Company Number: ES-ROCHE-1291190

PATIENT
  Age: 70 Year
  Sex: Female
  Weight: 69.9 kg

DRUGS (9)
  1. BEVACIZUMAB [Suspect]
     Indication: NON-SMALL CELL LUNG CANCER
     Dosage: DATE OF MOST RECENT DOSE PRIOR TO SAE: 29/OCT/2013
     Route: 042
     Dates: start: 20130709
  2. PEMETREXED [Suspect]
     Indication: NON-SMALL CELL LUNG CANCER
     Dosage: DATE OF MOST RECENT DOSE PRIOR TO SAE: 29/OCT/2013
     Route: 042
     Dates: start: 20130709
  3. OMEPRAZOL [Concomitant]
     Route: 065
  4. VITAMIN B12 [Concomitant]
     Indication: PREMEDICATION
     Dosage: TOTAL DAILY DOSE:1000 UG / 9 WEEKS
     Route: 065
     Dates: start: 20130704
  5. FOLIC ACID [Concomitant]
     Indication: PREMEDICATION
     Route: 065
     Dates: start: 20130704
  6. IBUPROFEN [Concomitant]
     Dosage: NPR
     Route: 065
  7. PREGABALIN [Concomitant]
     Route: 065
     Dates: start: 20130910
  8. POLYETHYLENE GLYCOL [Concomitant]
     Dosage: NPR
     Route: 065
     Dates: start: 20130910, end: 20131015
  9. FENTANYL [Concomitant]
     Route: 065
     Dates: start: 20130910

REACTIONS (2)
  - Pyrexia [Recovered/Resolved]
  - Pyrexia [Recovered/Resolved]
